FAERS Safety Report 9815914 (Version 2)
Quarter: 2014Q1

REPORT INFORMATION
  Report Type: Spontaneous
  Country: IT (occurrence: IT)
  Receive Date: 20140114
  Receipt Date: 20140325
  Transmission Date: 20141002
  Serious: Yes (Death)
  Sender: FDA-Public Use
  Company Number: IT-CELGENEUS-083-50794-14010266

PATIENT
  Sex: 0

DRUGS (1)
  1. VIDAZA [Suspect]
     Indication: MYELOPROLIFERATIVE DISORDER
     Route: 058
     Dates: start: 20120113, end: 20120121

REACTIONS (1)
  - Pneumonia [Fatal]
